FAERS Safety Report 20134071 (Version 1)
Quarter: 2021Q4

REPORT INFORMATION
  Report Type: Report from Study
  Country: US (occurrence: US)
  Receive Date: 20211201
  Receipt Date: 20211201
  Transmission Date: 20220303
  Serious: Yes (Other)
  Sender: FDA-Public Use
  Company Number: US-ABBVIE-21K-163-4177863-00

PATIENT
  Sex: Male

DRUGS (2)
  1. VENCLEXTA [Suspect]
     Active Substance: VENETOCLAX
     Indication: Graft versus host disease
     Dosage: FOR 3 WEEKS ON, THEN 3 WEEKS OFF
     Route: 048
     Dates: start: 201811
  2. VENCLEXTA [Suspect]
     Active Substance: VENETOCLAX
     Indication: Acute myeloid leukaemia
     Dosage: FOR 3 WEEKS ON, THEN 3 WEEKS OFF
     Route: 048

REACTIONS (1)
  - Limb operation [Unknown]
